FAERS Safety Report 6243102-X (Version None)
Quarter: 2009Q2

REPORT INFORMATION
  Report Type: 
  Country: None (occurrence: None)
  Receive Date: 20090617
  Receipt Date: 20080522
  Transmission Date: 20091009
  Serious: No
  Sender: FDA-Public Use
  Company Number: 275556

PATIENT
  Age: 54 Year
  Sex: Male

DRUGS (1)
  1. LEVEMIR [Suspect]
     Indication: INSULIN-REQUIRING TYPE 2 DIABETES MELLITUS
     Dosage: 22 IU, QD
     Dates: start: 20080410

REACTIONS (2)
  - INJECTION SITE HAEMORRHAGE [None]
  - INJECTION SITE NODULE [None]
